FAERS Safety Report 9881398 (Version 3)
Quarter: 2014Q1

REPORT INFORMATION
  Report Type: Spontaneous
  Country: US (occurrence: US)
  Receive Date: 20140207
  Receipt Date: 20140303
  Transmission Date: 20141002
  Serious: Yes (Other)
  Sender: FDA-Public Use
  Company Number: US-PFIZER INC-2014020868

PATIENT
  Age: 58 Year
  Sex: Male
  Weight: 127 kg

DRUGS (12)
  1. LYRICA [Suspect]
     Indication: NERVE INJURY
     Dosage: 300 MG, 1X/DAY (AT BED TIME)
  2. LYRICA [Suspect]
     Indication: RESTLESS LEGS SYNDROME
  3. LYRICA [Suspect]
     Indication: NEUROPATHY PERIPHERAL
  4. METOPROLOL [Concomitant]
     Indication: HYPERTENSION
     Dosage: 12.5 MG, 2X/DAY
  5. FLEXERIL [Concomitant]
     Dosage: 10 MG, 1X/DAY
  6. MOBIC [Concomitant]
     Dosage: 15 MG, 1X/DAY
  7. KLONOPIN [Concomitant]
     Dosage: 1 MG, 1X/DAY
  8. LASIX [Concomitant]
     Dosage: UNK, 1X/DAY
  9. ULTRAM [Concomitant]
     Dosage: 50 MG, UNK
  10. LOPRESSOR [Concomitant]
     Dosage: 17.5 MG, 1X/DAY
  11. NEXIUM [Concomitant]
     Dosage: 40 MG, 1X/DAY
  12. CYMBALTA [Concomitant]
     Dosage: 60 MG, 1X/DAY

REACTIONS (3)
  - Coronary artery disease [Unknown]
  - Cardiac disorder [Unknown]
  - Pain [Unknown]
